FAERS Safety Report 7788113-8 (Version None)
Quarter: 2011Q3

REPORT INFORMATION
  Report Type: 
  Country: None (occurrence: None)
  Receive Date: 20110927
  Receipt Date: 20110913
  Transmission Date: 20111222
  Serious: Yes (Other)
  Sender: FDA-Public Use
  Company Number: AUR-APL-2011-05100

PATIENT
  Age: 81 Year
  Sex: Male

DRUGS (6)
  1. LISINOPRIL (INSINOPRIL) [Concomitant]
  2. ASPIRIN [Concomitant]
  3. LANSOPRAZOLE [Concomitant]
  4. PRAVASTATIN [Concomitant]
  5. QUININE SULPHATE (QUININE SULFATE) [Concomitant]
  6. SIMVASTATIN [Suspect]
     Indication: PRODUCT USED FOR UNKNOWN INDICATION
     Dates: end: 20090802

REACTIONS (5)
  - MUSCLE SPASMS [None]
  - DRUG INEFFECTIVE [None]
  - CONVULSION [None]
  - NEUROPATHY PERIPHERAL [None]
  - MUSCLE RIGIDITY [None]
